FAERS Safety Report 5809066-5 (Version None)
Quarter: 2008Q3

REPORT INFORMATION
  Report Type: 
  Country: None (occurrence: None)
  Receive Date: 20080711
  Receipt Date: 20080711
  Transmission Date: 20090109
  Serious: Yes (Other)
  Sender: FDA-Public Use
  Company Number: None

PATIENT
  Sex: Female

DRUGS (2)
  1. PRIMIDONE [Suspect]
     Dosage: 250 MG QD PO
     Route: 048
     Dates: start: 20050801
  2. PRIMIDONE [Suspect]
     Dosage: 250 MG QD PO
     Route: 048
     Dates: start: 20080601

REACTIONS (3)
  - DIPLOPIA [None]
  - DIZZINESS [None]
  - PRESYNCOPE [None]
